FAERS Safety Report 5328818-1 (Version None)
Quarter: 2007Q2

REPORT INFORMATION
  Report Type: 
  Country: None (occurrence: None)
  Receive Date: 20070518
  Receipt Date: 20070511
  Transmission Date: 20071010
  Serious: Yes (Disabling)
  Sender: FDA-Public Use
  Company Number: US-MERCK-0705USA02456

PATIENT
  Age: 54 Year
  Sex: Female

DRUGS (1)
  1. VYTORIN [Suspect]
     Indication: DYSLIPIDAEMIA
     Route: 048
     Dates: start: 20070301, end: 20070101

REACTIONS (2)
  - BONE DISORDER [None]
  - MYALGIA [None]
